FAERS Safety Report 23811125 (Version 1)
Quarter: 2024Q2

REPORT INFORMATION
  Report Type: Spontaneous
  Country: AU (occurrence: AU)
  Receive Date: 20240502
  Receipt Date: 20240502
  Transmission Date: 20240716
  Serious: Yes (Hospitalization)
  Sender: FDA-Public Use
  Company Number: AU-BEH-2024171557

PATIENT
  Age: 37 Year
  Sex: Male

DRUGS (17)
  1. HUMAN IMMUNOGLOBULIN G [Suspect]
     Active Substance: HUMAN IMMUNOGLOBULIN G
     Route: 042
  2. ROCURONIUM [Suspect]
     Active Substance: ROCURONIUM BROMIDE
  3. CETRIMIDE [Suspect]
     Active Substance: CETRIMIDE
     Dosage: UNK
     Route: 061
  4. MIDAZOLAM [Concomitant]
     Active Substance: MIDAZOLAM
  5. FENTANYL [Concomitant]
     Active Substance: FENTANYL\FENTANYL CITRATE
  6. KETAMINE [Concomitant]
     Active Substance: KETAMINE
  7. PROPOFOL [Concomitant]
     Active Substance: PROPOFOL
  8. METARAMINOL [Concomitant]
     Active Substance: METARAMINOL
  9. NOREPINEPHRINE [Concomitant]
     Active Substance: NOREPINEPHRINE\NOREPINEPHRINE BITARTRATE
  10. CISATRACURIUM [Concomitant]
     Active Substance: CISATRACURIUM
  11. CHLORHEXIDINE [Concomitant]
     Active Substance: CHLORHEXIDINE\CHLORHEXIDINE GLUCONATE
     Dosage: TO NECK
     Route: 061
  12. BETADINE [Concomitant]
     Active Substance: POVIDONE-IODINE
  13. CLINDAMYCIN [Concomitant]
     Active Substance: CLINDAMYCIN
  14. VANCOMYCIN [Concomitant]
     Active Substance: VANCOMYCIN
  15. MEROPENEM [Concomitant]
     Active Substance: MEROPENEM
  16. CIPROFLOXACIN [Concomitant]
     Active Substance: CIPROFLOXACIN
  17. PIPERACILLIN SODIUM\TAZOBACTAM SODIUM [Concomitant]
     Active Substance: PIPERACILLIN SODIUM\TAZOBACTAM SODIUM

REACTIONS (4)
  - Dyspnoea [Unknown]
  - Urticaria [Unknown]
  - Wheezing [Unknown]
  - Urticaria [Unknown]

NARRATIVE: CASE EVENT DATE: 20240304
